FAERS Safety Report 9365267 (Version 1)
Quarter: 2013Q2

REPORT INFORMATION
  Report Type: Spontaneous
  Country: CO (occurrence: CO)
  Receive Date: 20130625
  Receipt Date: 20130625
  Transmission Date: 20140414
  Serious: Yes (Congenital Anomaly, Other)
  Sender: FDA-Public Use
  Company Number: CO-AMGEN-COLSP2013043848

PATIENT
  Age: 53 Year
  Sex: Male

DRUGS (6)
  1. ENBREL [Suspect]
     Indication: RHEUMATOID ARTHRITIS
     Dosage: 50 MG, WEEKLY
     Route: 058
     Dates: start: 201304
  2. ASPIRINA [Concomitant]
     Indication: CARDIAC DISORDER
     Dosage: 50 MG, 1X/DAY
     Route: 048
     Dates: start: 2009
  3. LOSARTAN [Concomitant]
     Indication: CARDIAC DISORDER
     Dosage: 50 MG, 2X/DAY
     Route: 048
     Dates: start: 2009
  4. OMEPRAZOL                          /00661201/ [Concomitant]
     Dosage: 50 MG, 1X/DAY
     Route: 048
     Dates: start: 2009
  5. ATORVASTATIN [Concomitant]
     Indication: AORTIC DISORDER
     Dosage: 75 MG, 1X/DAY
     Route: 048
     Dates: start: 2012
  6. ACETAMINOPHEN [Concomitant]
     Indication: PAIN
     Dosage: 50 MG, AS NEEDED
     Route: 048
     Dates: start: 2012

REACTIONS (5)
  - Cardiac disorder [Not Recovered/Not Resolved]
  - Pyrexia [Recovered/Resolved]
  - Headache [Unknown]
  - General physical health deterioration [Unknown]
  - Somnolence [Unknown]
